FAERS Safety Report 5473086-3 (Version None)
Quarter: 2007Q4

REPORT INFORMATION
  Report Type: 
  Country: None (occurrence: None)
  Receive Date: 20071001
  Receipt Date: 20070319
  Transmission Date: 20080405
  Serious: No
  Sender: FDA-Public Use
  Company Number: US-ASTRAZENECA-2007UW05346

PATIENT
  Age: 80 Year
  Sex: Female

DRUGS (7)
  1. ARIMIDEX [Suspect]
     Indication: BREAST CANCER
     Route: 048
     Dates: start: 20030401
  2. VERAPAMIL [Concomitant]
  3. CAPOSIDE [Concomitant]
  4. SYNTHROID [Concomitant]
  5. LOVASTATIN [Concomitant]
  6. ALLEGRA [Concomitant]
  7. VITAMINS [Concomitant]

REACTIONS (3)
  - ARTHRITIS [None]
  - PAIN [None]
  - SPINAL COLUMN STENOSIS [None]
